FAERS Safety Report 14057106 (Version 1)
Quarter: 2017Q4

REPORT INFORMATION
  Report Type: Spontaneous
  Country: TR (occurrence: TR)
  Receive Date: 20171006
  Receipt Date: 20171006
  Transmission Date: 20180321
  Serious: Yes (Other)
  Sender: FDA-Public Use
  Company Number: TR-FERRINGPH-2017FE04688

PATIENT

DRUGS (1)
  1. SOMATROPIN. [Suspect]
     Active Substance: SOMATROPIN
     Indication: GROWTH HORMONE DEFICIENCY
     Dosage: 0.03 MG/KG, DAILY
     Route: 058

REACTIONS (2)
  - Increased insulin requirement [Recovered/Resolved]
  - Diabetic ketoacidosis [Recovered/Resolved]
